FAERS Safety Report 12512570 (Version 2)
Quarter: 2016Q3

REPORT INFORMATION
  Report Type: Spontaneous
  Country: US (occurrence: US)
  Receive Date: 20160630
  Receipt Date: 20160817
  Transmission Date: 20161109
  Serious: Yes (Hospitalization, Other)
  Sender: FDA-Public Use
  Company Number: US-JNJFOC-20160505411

PATIENT
  Age: 63 Year
  Sex: Male

DRUGS (2)
  1. XARELTO [Suspect]
     Active Substance: RIVAROXABAN
     Indication: DEEP VEIN THROMBOSIS
     Route: 048
     Dates: start: 20150730, end: 20150821
  2. XARELTO [Suspect]
     Active Substance: RIVAROXABAN
     Indication: THROMBOPHLEBITIS SUPERFICIAL
     Route: 048
     Dates: start: 20150730, end: 20150821

REACTIONS (4)
  - Rectal haemorrhage [Unknown]
  - Cerebral haemorrhage [Unknown]
  - Gastrointestinal haemorrhage [Unknown]
  - Cerebral infarction [Unknown]

NARRATIVE: CASE EVENT DATE: 20150801
